FAERS Safety Report 16558726 (Version 3)
Quarter: 2019Q3

REPORT INFORMATION
  Report Type: Spontaneous
  Country: JP (occurrence: JP)
  Receive Date: 20190711
  Receipt Date: 20190812
  Transmission Date: 20191004
  Serious: Yes (Hospitalization, Disabling, Other)
  Sender: FDA-Public Use
  Company Number: JP-JNJFOC-20190702768

PATIENT
  Age: 52 Year
  Sex: Female

DRUGS (5)
  1. RABEPRAZOLE NA [Concomitant]
     Active Substance: RABEPRAZOLE SODIUM
  2. FLUNITRAZEPAM [Concomitant]
     Active Substance: FLUNITRAZEPAM
  3. TRAMADOL AND ACETAMINOPHEN [Concomitant]
     Active Substance: ACETAMINOPHEN\TRAMADOL HYDROCHLORIDE
  4. RIVAROXABAN [Suspect]
     Active Substance: RIVAROXABAN
     Indication: PULMONARY EMBOLISM
     Dosage: 15 MG, BID
     Route: 048
     Dates: start: 20181207, end: 201902
  5. ZOLPIDEM TARTRATE. [Concomitant]
     Active Substance: ZOLPIDEM TARTRATE

REACTIONS (6)
  - Trousseau^s syndrome [Not Recovered/Not Resolved]
  - Uterine cancer [Not Recovered/Not Resolved]
  - Dyslalia [Unknown]
  - Cerebral infarction [Recovered/Resolved with Sequelae]
  - Cerebral infarction [Recovered/Resolved with Sequelae]
  - Hemiplegia [Not Recovered/Not Resolved]

NARRATIVE: CASE EVENT DATE: 20181207
